FAERS Safety Report 7269591-X (Version None)
Quarter: 2011Q1

REPORT INFORMATION
  Report Type: 
  Country: None (occurrence: None)
  Receive Date: 20110125
  Receipt Date: 20110119
  Transmission Date: 20110831
  Serious: Yes (Hospitalization)
  Sender: FDA-Public Use
  Company Number: FRP11000081

PATIENT
  Age: 23 Year
  Sex: Female

DRUGS (11)
  1. DIAMOX [Suspect]
     Dosage: 250 MG, 1/DAY, ORAL
     Route: 048
     Dates: start: 20101105, end: 20101118
  2. CYPROTERONE (CYPROTERONE) [Concomitant]
  3. CORTANCYL (PREDNISONE) [Concomitant]
  4. ZITHROMAX [Suspect]
     Dosage: 250 MG, 1/DAY, ORAL
     Route: 048
     Dates: start: 20101105, end: 20101118
  5. KALEORID (POTASSIUM CHLORIDE) 100MG [Suspect]
     Dosage: 1000 MG, 1/DAY, ORAL
     Route: 048
     Dates: start: 20101105, end: 20101118
  6. LEDERFOLINE (CALCIUM FOLINATE) 25MG [Suspect]
     Dosage: 25 MG, 2/DAY, ORAL
     Route: 048
     Dates: start: 20101105, end: 20101115
  7. MALOCIDE /00112501/ (PYRIMETHAMINE) 50MG [Suspect]
     Dosage: 50 MG, 1/DAY, ORAL
     Route: 048
     Dates: start: 20101105, end: 20101118
  8. COSOPT [Suspect]
     Dosage: 2 DROP, 1/DAY, OPHTHALMIC
     Route: 047
     Dates: start: 20101105, end: 20101118
  9. ACTONEL [Suspect]
     Dosage: 35 MG, 1/WEEK, ORAL
     Route: 048
     Dates: start: 20101105, end: 20101118
  10. OROCAL /00108001/ (CALCIUM CARBONATE) [Suspect]
     Dosage: 1 DF, 2/DAY, ORAL
     Route: 048
     Dates: start: 20101105, end: 20101118
  11. GRANUDOXY /00055701/ (DOXYCYCLINE) [Concomitant]

REACTIONS (3)
  - HYPOCALCAEMIA [None]
  - DYSKINESIA [None]
  - DYSARTHRIA [None]
